FAERS Safety Report 20104632 (Version 1)
Quarter: 2021Q4

REPORT INFORMATION
  Report Type: Spontaneous
  Country: US (occurrence: US)
  Receive Date: 20211123
  Receipt Date: 20211123
  Transmission Date: 20220303
  Serious: Yes (Death, Hospitalization)
  Sender: FDA-Public Use
  Company Number: US-JNJFOC-20211131286

PATIENT
  Age: 44 Year
  Sex: Female
  Weight: 65.9 kg

DRUGS (5)
  1. TYLENOL [Suspect]
     Active Substance: ACETAMINOPHEN
     Indication: Product used for unknown indication
     Dosage: 2000 MG/DAY FOR 90 DAYS (18,000 MG TOTAL DOSE OF ACETAMINOPHEN)
     Route: 048
     Dates: end: 19980311
  2. VICODIN [Suspect]
     Active Substance: ACETAMINOPHEN\HYDROCODONE BITARTRATE
     Indication: Product used for unknown indication
     Dosage: UNKNOWN DOSE FOR 30 DAYS
     Route: 048
     Dates: end: 19980311
  3. PAXIL [Concomitant]
     Active Substance: PAROXETINE HYDROCHLORIDE
     Indication: Product used for unknown indication
     Dosage: 20 MG/ DAY FOR 90 DAYS
     Route: 065
     Dates: end: 19980311
  4. PRIMAXIN IV [Concomitant]
     Active Substance: CILASTATIN SODIUM\IMIPENEM
     Indication: Product used for unknown indication
     Dosage: 625 MG/ DAY FOR 90 DAYS
     Route: 065
     Dates: end: 19980311
  5. XANAX [Concomitant]
     Active Substance: ALPRAZOLAM
     Indication: Product used for unknown indication
     Dosage: 0.30 MG/DAY FOR 90 DAYS
     Route: 065
     Dates: end: 19980311

REACTIONS (10)
  - Acute hepatic failure [Fatal]
  - Brain oedema [Fatal]
  - Brain herniation [Fatal]
  - Arrhythmia [Fatal]
  - Acute respiratory distress syndrome [Fatal]
  - Fungal infection [Fatal]
  - Product administration error [Fatal]
  - Accidental overdose [Fatal]
  - Blood creatinine increased [Fatal]
  - Blood urea increased [Fatal]

NARRATIVE: CASE EVENT DATE: 19980314
